FAERS Safety Report 25952903 (Version 1)
Quarter: 2025Q4

REPORT INFORMATION
  Report Type: Spontaneous
  Country: CN (occurrence: CN)
  Receive Date: 20251023
  Receipt Date: 20251023
  Transmission Date: 20260117
  Serious: Yes (Hospitalization, Other)
  Sender: SANOFI AVENTIS
  Company Number: CN-SA-2025SA309966

PATIENT
  Age: 71 Year
  Sex: Male
  Weight: 82 kg

DRUGS (8)
  1. ENOXAPARIN SODIUM [Suspect]
     Active Substance: ENOXAPARIN SODIUM
     Indication: Anticoagulant therapy
     Dosage: 1 DF, QD
     Route: 058
     Dates: start: 20250911, end: 20250918
  2. MOSAPRIDE CITRATE [Suspect]
     Active Substance: MOSAPRIDE CITRATE
     Indication: Gastrointestinal disorder
     Dosage: 5 MG, TID (NASAL FEEDING)
     Route: 045
     Dates: start: 20250911, end: 20250918
  3. OMEPRAZOLE SODIUM [Concomitant]
     Active Substance: OMEPRAZOLE SODIUM
     Indication: Pneumonia
     Dosage: 40 MG, QD
     Route: 041
     Dates: start: 20250911, end: 20250925
  4. MOXIFLOXACIN HYDROCHLORIDE [Concomitant]
     Active Substance: MOXIFLOXACIN HYDROCHLORIDE
     Indication: Infection
     Dosage: 0.4 G, QD
     Route: 041
     Dates: start: 20250911, end: 20250915
  5. OSELTAMIVIR PHOSPHATE [Concomitant]
     Active Substance: OSELTAMIVIR PHOSPHATE
     Indication: Influenza
     Dosage: 75 MG, BID
     Route: 045
     Dates: start: 20250912, end: 20250922
  6. MEROPENEM [Concomitant]
     Active Substance: MEROPENEM
     Indication: Infection
     Dosage: 1.000G TID
     Route: 041
     Dates: start: 20250915, end: 20250925
  7. POLYMYXIN B SULFATE [Concomitant]
     Active Substance: POLYMYXIN B SULFATE
     Indication: Infection
     Dosage: 50 UNK, BID ( 10^4 U)
     Route: 041
     Dates: start: 20250915, end: 20250925
  8. PIPERACILLIN AND TAZOBACTAM [Concomitant]
     Active Substance: PIPERACILLIN SODIUM\TAZOBACTAM SODIUM
     Dosage: UNK
     Dates: start: 20250911, end: 20250915

REACTIONS (3)
  - Pneumonia [Unknown]
  - Condition aggravated [Unknown]
  - Transaminases increased [Recovered/Resolved]

NARRATIVE: CASE EVENT DATE: 20250912
